FAERS Safety Report 5601415-6 (Version None)
Quarter: 2008Q1

REPORT INFORMATION
  Report Type: 
  Country: None (occurrence: None)
  Receive Date: 20080124
  Receipt Date: 20080118
  Transmission Date: 20080703
  Serious: Yes (Hospitalization, Other)
  Sender: FDA-Public Use
  Company Number: US-MERCK-0707USA03806

PATIENT
  Age: 75 Year
  Sex: Female

DRUGS (12)
  1. FOSAMAX [Suspect]
     Indication: OSTEOPOROSIS
     Route: 048
     Dates: start: 20020108, end: 20020101
  2. FOSAMAX [Suspect]
     Route: 048
     Dates: start: 20020101, end: 20060306
  3. EVISTA [Concomitant]
     Route: 065
     Dates: start: 20020114, end: 20070825
  4. OXYCONTIN [Concomitant]
     Route: 065
     Dates: start: 20020124, end: 20070821
  5. MIACALCIN [Concomitant]
     Route: 065
     Dates: start: 20020203, end: 20050612
  6. ZOLOFT [Concomitant]
     Route: 065
     Dates: start: 20020208, end: 20050428
  7. PREDNISONE [Concomitant]
     Route: 065
     Dates: start: 20020602, end: 20050201
  8. ACIPHEX [Concomitant]
     Route: 065
  9. ASPIRIN [Concomitant]
     Route: 065
  10. COMBIVENT [Concomitant]
     Indication: CHRONIC OBSTRUCTIVE PULMONARY DISEASE
     Route: 065
  11. ALBUTEROL [Concomitant]
     Indication: CHRONIC OBSTRUCTIVE PULMONARY DISEASE
     Route: 065
  12. CALTRATE 600 PLUS VITAMIN D [Concomitant]
     Route: 065

REACTIONS (21)
  - ANAEMIA [None]
  - ATROPHIC VULVOVAGINITIS [None]
  - BLOOD CALCIUM INCREASED [None]
  - CELLULITIS [None]
  - DIZZINESS [None]
  - ECCHYMOSIS [None]
  - FALL [None]
  - FIBROCYSTIC BREAST DISEASE [None]
  - GENERALISED ANXIETY DISORDER [None]
  - HYPERSENSITIVITY [None]
  - JOINT INJURY [None]
  - MAJOR DEPRESSION [None]
  - MUSCULOSKELETAL PAIN [None]
  - OSTEOMYELITIS CHRONIC [None]
  - OSTEONECROSIS [None]
  - OTITIS EXTERNA [None]
  - OVERDOSE [None]
  - PAIN [None]
  - POSTMENOPAUSAL HAEMORRHAGE [None]
  - ROAD TRAFFIC ACCIDENT [None]
  - SELF-INJURIOUS IDEATION [None]
